FAERS Safety Report 9773688 (Version 2)
Quarter: 2014Q1

REPORT INFORMATION
  Report Type: Report from Study
  Country: DE (occurrence: DE)
  Receive Date: 20131219
  Receipt Date: 20140120
  Transmission Date: 20141002
  Serious: Yes (Death)
  Sender: FDA-Public Use
  Company Number: PHHO2013DE016461

PATIENT
  Age: 74 Year
  Sex: Male
  Weight: 108 kg

DRUGS (4)
  1. AMN107 [Suspect]
     Indication: CHRONIC MYELOID LEUKAEMIA
     Dosage: 30 G, BID
     Route: 048
     Dates: start: 20131106
  2. EZETIMIBA [Concomitant]
     Indication: HYPERTENSION
     Dosage: 20 G, UNK
     Route: 048
     Dates: start: 20131106
  3. NEBIVOLOL [Concomitant]
     Indication: HYPERTENSION
     Dosage: 5 G, UNK
     Route: 048
  4. ASS [Concomitant]
     Indication: CORONARY ARTERY DISEASE
     Dosage: 100 G, UNK
     Route: 048

REACTIONS (1)
  - Cardiac arrest [Fatal]
